FAERS Safety Report 11944256 (Version 3)
Quarter: 2016Q3

REPORT INFORMATION
  Report Type: Spontaneous
  Country: US (occurrence: US)
  Receive Date: 20160125
  Receipt Date: 20160726
  Transmission Date: 20161109
  Serious: Yes (Hospitalization, Other)
  Sender: FDA-Public Use
  Company Number: US-UNITED THERAPEUTICS-UNT-2015-013561

PATIENT
  Age: 70 Year
  Sex: Male
  Weight: 68.27 kg

DRUGS (6)
  1. REMODULIN [Suspect]
     Active Substance: TREPROSTINIL
     Dosage: 0.043 ?G/KG, 24 HOURS
     Route: 041
  2. REMODULIN [Suspect]
     Active Substance: TREPROSTINIL
     Dosage: 0.043 ?G/KG, CONTINUING
     Route: 041
  3. REMODULIN [Suspect]
     Active Substance: TREPROSTINIL
     Indication: PULMONARY ARTERIAL HYPERTENSION
     Dosage: 0.040 ?G/KG, CONTINUING
     Route: 041
     Dates: start: 20140212
  4. OXYGEN. [Concomitant]
     Active Substance: OXYGEN
     Indication: PRODUCT USED FOR UNKNOWN INDICATION
  5. REMODULIN [Suspect]
     Active Substance: TREPROSTINIL
     Dosage: 0.022 ?G/KG, CONTINUING
     Route: 041
     Dates: start: 20140220
  6. OPSUMIT [Suspect]
     Active Substance: MACITENTAN
     Indication: PRODUCT USED FOR UNKNOWN INDICATION
     Dosage: UNK
     Route: 065
     Dates: start: 20160127

REACTIONS (19)
  - Palmar erythema [Recovered/Resolved]
  - Walking distance test abnormal [Unknown]
  - Pain in jaw [Unknown]
  - Pain in extremity [Unknown]
  - Nasal dryness [Unknown]
  - Cough [Unknown]
  - Anaemia [Unknown]
  - Chills [Unknown]
  - Hypopnoea [Unknown]
  - Exercise tolerance decreased [Unknown]
  - Headache [Unknown]
  - Diarrhoea [Recovering/Resolving]
  - Dyspnoea [Not Recovered/Not Resolved]
  - Pulmonary arterial hypertension [Unknown]
  - Epistaxis [Recovered/Resolved]
  - Haemorrhage [Unknown]
  - Device issue [Unknown]
  - Chest discomfort [Unknown]
  - Overgrowth fungal [Unknown]

NARRATIVE: CASE EVENT DATE: 201510
